FAERS Safety Report 7926444-9 (Version None)
Quarter: 2011Q4

REPORT INFORMATION
  Report Type: 
  Country: None (occurrence: None)
  Receive Date: 20111118
  Receipt Date: 20111110
  Transmission Date: 20120403
  Serious: No
  Sender: FDA-Public Use
  Company Number: US-BIOGENIDEC-2011BI043055

PATIENT
  Age: 25 Year
  Sex: Female

DRUGS (1)
  1. TYSABRI [Suspect]
     Indication: MULTIPLE SCLEROSIS
     Route: 042
     Dates: start: 20110801

REACTIONS (8)
  - OSTEITIS [None]
  - VISUAL IMPAIRMENT [None]
  - MUSCLE TWITCHING [None]
  - DRUG INEFFECTIVE [None]
  - TEMPOROMANDIBULAR JOINT SYNDROME [None]
  - NAUSEA [None]
  - PAIN IN JAW [None]
  - PAIN IN EXTREMITY [None]
